FAERS Safety Report 4537362-0 (Version None)
Quarter: 2004Q4

REPORT INFORMATION
  Report Type: 
  Country: None (occurrence: None)
  Receive Date: 20041223
  Receipt Date: 20041215
  Transmission Date: 20050328
  Serious: Yes (Other)
  Sender: FDA-Public Use
  Company Number: FR-ABBOTT-04P-056-0283748-00

PATIENT
  Sex: Male

DRUGS (8)
  1. MICROPAKINE GRANULATES [Suspect]
     Indication: EPILEPSY
     Dates: start: 20040614, end: 20040719
  2. ATENOLOL [Concomitant]
     Indication: HYPERTENSION
     Route: 048
     Dates: start: 20020601
  3. FUROSEMIDE [Concomitant]
     Indication: HYPERTENSION
     Route: 048
     Dates: start: 20020729
  4. ACETYLSALICYLATE LYSINE [Concomitant]
     Indication: ISCHAEMIC STROKE
     Route: 048
     Dates: start: 20020819
  5. ZOPICLONE [Concomitant]
     Indication: INSOMNIA
     Route: 048
     Dates: start: 20030131
  6. MIANSERIN HYDROCHLORIDE [Concomitant]
     Indication: DEPRESSION
     Route: 048
     Dates: start: 20030129, end: 20040222
  7. MIANSERIN HYDROCHLORIDE [Concomitant]
     Route: 048
     Dates: start: 20040223
  8. POTASSIUM CHLORIDE [Concomitant]
     Indication: HYPOKALAEMIA
     Route: 048
     Dates: start: 20040505

REACTIONS (4)
  - CHOLELITHIASIS [None]
  - CHOLESTASIS [None]
  - CYTOLYTIC HEPATITIS [None]
  - JAUNDICE [None]
